FAERS Safety Report 9321524 (Version 2)
Quarter: 2013Q3

REPORT INFORMATION
  Report Type: Report from Study
  Country: AU (occurrence: AU)
  Receive Date: 20130531
  Receipt Date: 20130806
  Transmission Date: 20140515
  Serious: Yes (Death)
  Sender: FDA-Public Use
  Company Number: PHHY2013AU054985

PATIENT
  Sex: Female

DRUGS (7)
  1. ACLASTA [Suspect]
     Indication: OSTEOPOROSIS
     Dosage: 5 MG
     Route: 042
     Dates: start: 20090501
  2. ACLASTA [Suspect]
     Dosage: 5 MG
     Route: 042
     Dates: start: 20100413
  3. ACLASTA [Suspect]
     Dosage: 5 MG
     Route: 042
     Dates: start: 20120604
  4. PARACETAMOL [Concomitant]
     Dosage: UNK
  5. COVERSYL [Concomitant]
     Dosage: UNK
  6. REMINYL [Concomitant]
     Dosage: UNK
  7. BUPRENORPHINE [Concomitant]
     Dosage: UNK
     Route: 062

REACTIONS (2)
  - Dementia [Fatal]
  - Pain [Fatal]
